FAERS Safety Report 13975591 (Version 1)
Quarter: 2017Q3

REPORT INFORMATION
  Report Type: Spontaneous
  Country: US (occurrence: US)
  Receive Date: 20170915
  Receipt Date: 20170915
  Transmission Date: 20171128
  Serious: No
  Sender: FDA-Public Use
  Company Number: US-PFIZER INC-2017395414

PATIENT
  Age: 53 Year
  Sex: Female

DRUGS (1)
  1. GLIBENCLAMIDE [Suspect]
     Active Substance: GLYBURIDE
     Dosage: UNK

REACTIONS (1)
  - Palpitations [Unknown]
